FAERS Safety Report 9502942 (Version 3)
Quarter: 2013Q4

REPORT INFORMATION
  Report Type: Spontaneous
  Country: US (occurrence: None)
  Receive Date: 20130107
  Receipt Date: 20131226
  Transmission Date: 20140711
  Serious: Yes (Other)
  Sender: FDA-Public Use
  Company Number: PHEH2012US018621

PATIENT
  Age: 49 Year
  Sex: Male
  Weight: 56.7 kg

DRUGS (1)
  1. GILENYA [Suspect]
     Indication: MULTIPLE SCLEROSIS
     Route: 048
     Dates: start: 20111214

REACTIONS (18)
  - Proctalgia [None]
  - Oral mucosal erythema [None]
  - Oral pain [None]
  - Decreased appetite [None]
  - Weight decreased [None]
  - Multiple sclerosis [None]
  - Peroneal nerve palsy [None]
  - Nervous system disorder [None]
  - Central nervous system lesion [None]
  - Musculoskeletal disorder [None]
  - Muscular weakness [None]
  - Urinary incontinence [None]
  - Depressed mood [None]
  - Hypoaesthesia [None]
  - Visual impairment [None]
  - Memory impairment [None]
  - Motor dysfunction [None]
  - Pain [None]
